FAERS Safety Report 6151645-2 (Version None)
Quarter: 2009Q2

REPORT INFORMATION
  Report Type: 
  Country: None (occurrence: None)
  Receive Date: 20090410
  Receipt Date: 20090406
  Transmission Date: 20091009
  Serious: Yes (Other)
  Sender: FDA-Public Use
  Company Number: US-ROXANE LABORATORIES, INC.-2009-RO-00371RO

PATIENT
  Age: 43 Year
  Sex: Female

DRUGS (1)
  1. LITHIUM CARBONATE [Suspect]

REACTIONS (4)
  - ANOREXIA [None]
  - CHOLECYSTECTOMY [None]
  - NAUSEA [None]
  - VOMITING [None]
